FAERS Safety Report 6567014-7 (Version None)
Quarter: 2010Q1

REPORT INFORMATION
  Report Type: 
  Country: None (occurrence: None)
  Receive Date: 20100202
  Receipt Date: 20100120
  Transmission Date: 20100710
  Serious: Yes (Other)
  Sender: FDA-Public Use
  Company Number: CA-GENENTECH-287000

PATIENT
  Sex: Male
  Weight: 35.8 kg

DRUGS (4)
  1. XOLAIR [Suspect]
     Indication: ASTHMA
     Dosage: 375 MG, Q2W
     Route: 058
     Dates: start: 20080930
  2. XOLAIR [Suspect]
     Dosage: 375 MG, Q2W
     Route: 058
     Dates: start: 20090902
  3. XOLAIR [Suspect]
     Dosage: 375 MG, Q2W
     Dates: start: 20090930
  4. XOLAIR [Suspect]
     Dosage: 375 MG, UNK
     Dates: start: 20100120

REACTIONS (4)
  - BLOOD PRESSURE DECREASED [None]
  - BODY TEMPERATURE DECREASED [None]
  - HYPERSENSITIVITY [None]
  - OROPHARYNGEAL PAIN [None]
